FAERS Safety Report 8437173-X (Version None)
Quarter: 2012Q2

REPORT INFORMATION
  Report Type: 
  Country: None (occurrence: None)
  Receive Date: 20120614
  Receipt Date: 20120229
  Transmission Date: 20120825
  Serious: No
  Sender: FDA-Public Use
  Company Number: US-AMGEN-USASP2011044789

PATIENT
  Age: 60 Year
  Sex: Female
  Weight: 67.574 kg

DRUGS (7)
  1. CALCIUM [Concomitant]
  2. M.V.I. [Concomitant]
  3. VITAMIN D [Concomitant]
  4. GLUCOSAMINE [Concomitant]
  5. LOVAZA [Concomitant]
  6. VITAMIN E                          /00110501/ [Concomitant]
  7. PROLIA [Suspect]
     Indication: OSTEOPOROSIS POSTMENOPAUSAL
     Dosage: 60 MG, Q6MO
     Route: 058
     Dates: start: 20110818

REACTIONS (2)
  - PAIN IN EXTREMITY [None]
  - RASH PRURITIC [None]
